FAERS Safety Report 19570106 (Version 2)
Quarter: 2021Q3

REPORT INFORMATION
  Report Type: Report from Study
  Country: FR (occurrence: FR)
  Receive Date: 20210716
  Receipt Date: 20210731
  Transmission Date: 20211014
  Serious: Yes (Hospitalization, Other)
  Sender: FDA-Public Use
  Company Number: FR-TAKEDA-2021TUS042996

PATIENT
  Age: 19 Year
  Sex: Male
  Weight: 54 kg

DRUGS (18)
  1. TEDUGLUTIDE [Suspect]
     Active Substance: TEDUGLUTIDE
     Dosage: 2.795 MILLIGRAM
     Route: 065
     Dates: start: 20190201, end: 20200325
  2. TEDUGLUTIDE [Suspect]
     Active Substance: TEDUGLUTIDE
     Dosage: 2.690 MILLIGRAM
     Route: 065
     Dates: start: 20200326, end: 20200929
  3. TEDUGLUTIDE [Suspect]
     Active Substance: TEDUGLUTIDE
     Dosage: 2.650 UNK
     Route: 065
     Dates: start: 20200929
  4. TEDUGLUTIDE [Suspect]
     Active Substance: TEDUGLUTIDE
     Indication: SHORT-BOWEL SYNDROME
     Dosage: 2.690 MILLIGRAM, QD
     Route: 065
     Dates: start: 20181109, end: 20190201
  5. TEDUGLUTIDE [Suspect]
     Active Substance: TEDUGLUTIDE
     Indication: SHORT-BOWEL SYNDROME
     Dosage: 2.690 MILLIGRAM, QD
     Route: 065
     Dates: start: 20181109, end: 20190201
  6. TEDUGLUTIDE [Suspect]
     Active Substance: TEDUGLUTIDE
     Indication: SHORT-BOWEL SYNDROME
     Dosage: 2.690 MILLIGRAM, QD
     Route: 065
     Dates: start: 20181109, end: 20190201
  7. TEDUGLUTIDE [Suspect]
     Active Substance: TEDUGLUTIDE
     Dosage: 2.795 MILLIGRAM
     Route: 065
     Dates: start: 20190201, end: 20200325
  8. TEDUGLUTIDE [Suspect]
     Active Substance: TEDUGLUTIDE
     Dosage: 2.650 UNK
     Route: 065
     Dates: start: 20200929
  9. TEDUGLUTIDE [Suspect]
     Active Substance: TEDUGLUTIDE
     Dosage: 2.690 MILLIGRAM
     Route: 065
     Dates: start: 20200326, end: 20200929
  10. INEXIUM [Concomitant]
     Active Substance: ESOMEPRAZOLE
     Indication: ABDOMINAL PAIN
     Dosage: 20 MILLIGRAM, QD
     Route: 048
     Dates: start: 2016
  11. TEDUGLUTIDE [Suspect]
     Active Substance: TEDUGLUTIDE
     Dosage: 2.690 MILLIGRAM
     Route: 065
     Dates: start: 20200326, end: 20200929
  12. TEDUGLUTIDE [Suspect]
     Active Substance: TEDUGLUTIDE
     Dosage: 2.650 UNK
     Route: 065
     Dates: start: 20200929
  13. TEDUGLUTIDE [Suspect]
     Active Substance: TEDUGLUTIDE
     Indication: SHORT-BOWEL SYNDROME
     Dosage: 2.690 MILLIGRAM, QD
     Route: 065
     Dates: start: 20181109, end: 20190201
  14. TEDUGLUTIDE [Suspect]
     Active Substance: TEDUGLUTIDE
     Dosage: 2.795 MILLIGRAM
     Route: 065
     Dates: start: 20190201, end: 20200325
  15. TEDUGLUTIDE [Suspect]
     Active Substance: TEDUGLUTIDE
     Dosage: 2.690 MILLIGRAM
     Route: 065
     Dates: start: 20200326, end: 20200929
  16. DELURSAN [Concomitant]
     Active Substance: URSODIOL
     Indication: ABDOMINAL PAIN
     Dosage: 250 MILLIGRAM, QD
     Route: 048
     Dates: start: 2016
  17. TEDUGLUTIDE [Suspect]
     Active Substance: TEDUGLUTIDE
     Dosage: 2.795 MILLIGRAM
     Route: 065
     Dates: start: 20190201, end: 20200325
  18. TEDUGLUTIDE [Suspect]
     Active Substance: TEDUGLUTIDE
     Dosage: 2.650 UNK
     Route: 065
     Dates: start: 20200929

REACTIONS (1)
  - Rectal haemorrhage [Recovered/Resolved]

NARRATIVE: CASE EVENT DATE: 20210604
